FAERS Safety Report 9830999 (Version 2)
Quarter: 2014Q1

REPORT INFORMATION
  Report Type: Report from Study
  Country: IN (occurrence: IN)
  Receive Date: 20140120
  Receipt Date: 20140124
  Transmission Date: 20141002
  Serious: Yes (Death, Hospitalization, Other)
  Sender: FDA-Public Use
  Company Number: PHHY2014IN005268

PATIENT
  Age: 72 Year
  Sex: Female

DRUGS (1)
  1. ACLASTA [Suspect]
     Indication: OSTEOPOROSIS
     Dosage: 5 MG, ANNUALLY
     Route: 042
     Dates: start: 20130116

REACTIONS (6)
  - Death [Fatal]
  - Constipation [Unknown]
  - Haemoglobin decreased [Unknown]
  - Abdominal distension [Unknown]
  - Back pain [Unknown]
  - Pain in extremity [Unknown]
